FAERS Safety Report 17798850 (Version 2)
Quarter: 2020Q3

REPORT INFORMATION
  Report Type: Spontaneous
  Country: DE (occurrence: DE)
  Receive Date: 20200518
  Receipt Date: 20200929
  Transmission Date: 20201102
  Serious: Yes (Hospitalization, Other)
  Sender: FDA-Public Use
  Company Number: DE-TEVA-2020-DE-1235669

PATIENT
  Age: 79 Year
  Sex: Female

DRUGS (13)
  1. VINBLASTIN [Suspect]
     Active Substance: VINBLASTINE
     Dosage: SCHEME
  2. ENTRESTO [Concomitant]
     Active Substance: SACUBITRIL\VALSARTAN
     Dosage: 2 DOSAGE FORMS DAILY; 97|103 MG, 1?0?1?0
  3. EPLERENON [Concomitant]
     Active Substance: EPLERENONE
     Dosage: 25 MILLIGRAM DAILY;  1?0?0?0
  4. DOXORUBICIN [Suspect]
     Active Substance: DOXORUBICIN
     Dosage: SCHEME
  5. IVABRADIN [Concomitant]
     Active Substance: IVABRADINE
     Dosage: 10 MILLIGRAM DAILY;  1?0?1?0
  6. PAROXETIN [Concomitant]
     Active Substance: PAROXETINE HYDROCHLORIDE
     Dosage: 20 MILLIGRAM DAILY; 1?0?0?0
  7. PANTOPRAZOL [Concomitant]
     Active Substance: PANTOPRAZOLE SODIUM
     Dosage: 20 MILLIGRAM DAILY; 1?0?0?0
  8. QUETIAPIN [Concomitant]
     Active Substance: QUETIAPINE
     Dosage: 25 MILLIGRAM DAILY; 0?0?1?0
  9. SPASMEX 15MG [Concomitant]
     Dosage: 15 MILLIGRAM DAILY;  1?0?0?0
  10. DACARBAZIN [Suspect]
     Active Substance: DACARBAZINE
     Dosage: SCHEME
  11. COTRIM [Suspect]
     Active Substance: SULFAMETHOXAZOLE\TRIMETHOPRIM
     Dosage: 800|160 MG, 1?0?0?0, MONDAY WEDNESDAY FRIDAY
  12. DEKRISTOL 20000I.E. [Concomitant]
     Dosage: 20000 IE, 1?0?0?0, EVERY MONDAY
  13. BRENTUXIMAB VEDOTIN [Suspect]
     Active Substance: BRENTUXIMAB VEDOTIN
     Dosage: SCHEME

REACTIONS (4)
  - Asthenia [Recovering/Resolving]
  - Bicytopenia [Recovering/Resolving]
  - Diarrhoea [Recovering/Resolving]
  - General physical health deterioration [Recovering/Resolving]
